FAERS Safety Report 9381883 (Version 1)
Quarter: 2013Q3

REPORT INFORMATION
  Report Type: Spontaneous
  Country: US (occurrence: US)
  Receive Date: 20130703
  Receipt Date: 20130703
  Transmission Date: 20140515
  Serious: No
  Sender: FDA-Public Use
  Company Number: US-009507513-1307USA000670

PATIENT
  Age: 71 Year
  Sex: Female

DRUGS (2)
  1. NASONEX [Suspect]
     Indication: CERUMEN IMPACTION
     Dosage: TWO SPRAYS IN EACH NOSTRIL 1 IN THE MORNING, (EA) 50
     Route: 055
     Dates: start: 20130620
  2. [THERAPY UNSPECIFIED] [Concomitant]
     Indication: HYPERTENSION
     Dosage: UNK

REACTIONS (3)
  - Medication error [Unknown]
  - Incorrect route of drug administration [Unknown]
  - Drug administration error [Unknown]
